FAERS Safety Report 4477807-8 (Version None)
Quarter: 2004Q4

REPORT INFORMATION
  Report Type: 
  Country: None (occurrence: None)
  Receive Date: 20041014
  Receipt Date: 20041001
  Transmission Date: 20050328
  Serious: Yes (Death)
  Sender: FDA-Public Use
  Company Number: HQWYE635607OCT04

PATIENT
  Age: 25 Year

DRUGS (3)
  1. INDERAL [Suspect]
     Dosage: ORAL
     Route: 048
  2. DILTIAZEM (DILTIZEM) [Suspect]
     Dosage: ORAL
     Route: 048
  3. ETHANOL (ETHANOL) [Suspect]
     Dosage: PARENTERAL
     Route: 051

REACTIONS (1)
  - CARDIO-RESPIRATORY ARREST [None]
